FAERS Safety Report 12299490 (Version 3)
Quarter: 2016Q3

REPORT INFORMATION
  Report Type: Spontaneous
  Country: US (occurrence: US)
  Receive Date: 20160425
  Receipt Date: 20160829
  Transmission Date: 20161109
  Serious: No
  Sender: FDA-Public Use
  Company Number: US-PFIZER INC-2016190103

PATIENT
  Age: 47 Year
  Sex: Female
  Weight: 52 kg

DRUGS (5)
  1. CYTOMEL [Suspect]
     Active Substance: LIOTHYRONINE SODIUM
     Dosage: UNK
  2. PROGESTERONE. [Concomitant]
     Active Substance: PROGESTERONE
     Indication: HORMONE LEVEL ABNORMAL
     Dosage: 200 MG, 1X/DAY (EVENING)
     Route: 048
  3. TESTOSTERONE. [Concomitant]
     Active Substance: TESTOSTERONE
     Indication: HORMONE LEVEL ABNORMAL
     Dosage: UNK, 1X/DAY
     Dates: end: 201603
  4. CYTOMEL [Suspect]
     Active Substance: LIOTHYRONINE SODIUM
     Indication: HYPOTHYROIDISM
     Dosage: 125 UG, DAILY, ONE HALF 50UG TABLET BY MOUTH FIVE TIMES A DAY
     Route: 048
     Dates: start: 2012
  5. CYTOMEL [Suspect]
     Active Substance: LIOTHYRONINE SODIUM
     Dosage: UNK
     Route: 048

REACTIONS (5)
  - Alopecia [Unknown]
  - Drug ineffective [Unknown]
  - Dry skin [Unknown]
  - Malaise [Unknown]
  - Fatigue [Unknown]
